FAERS Safety Report 8428274-0 (Version None)
Quarter: 2012Q2

REPORT INFORMATION
  Report Type: 
  Country: None (occurrence: None)
  Receive Date: 20120611
  Receipt Date: 20120607
  Transmission Date: 20120825
  Serious: Yes (Hospitalization, Other)
  Sender: FDA-Public Use
  Company Number: US-MERCK-1006USA01071

PATIENT
  Age: 70 Year
  Sex: Female
  Weight: 68 kg

DRUGS (6)
  1. BONIVA [Suspect]
     Indication: OSTEOPOROSIS PROPHYLAXIS
     Route: 048
     Dates: start: 20070601
  2. ACTONEL [Suspect]
     Indication: OSTEOPOROSIS PROPHYLAXIS
     Route: 048
     Dates: start: 20020101, end: 20031101
  3. DIOVAN [Concomitant]
     Indication: HYPERTENSION
     Route: 065
     Dates: start: 20060101
  4. SIMVASTATIN [Concomitant]
     Indication: BLOOD CHOLESTEROL INCREASED
     Route: 065
     Dates: start: 19860101
  5. METOPROLOL [Concomitant]
     Indication: HYPERTENSION
     Route: 065
     Dates: start: 19860101
  6. FOSAMAX [Suspect]
     Indication: OSTEOPOROSIS PROPHYLAXIS
     Route: 048
     Dates: start: 20040101, end: 20120101

REACTIONS (23)
  - DYSPNOEA [None]
  - CATARACT [None]
  - SINUSITIS [None]
  - DYSPNOEA EXERTIONAL [None]
  - CAROTID BRUIT [None]
  - INJURY [None]
  - ROSACEA [None]
  - DIZZINESS [None]
  - SQUAMOUS CELL CARCINOMA [None]
  - URINARY TRACT INFECTION [None]
  - RHINITIS ALLERGIC [None]
  - LOW TURNOVER OSTEOPATHY [None]
  - FALL [None]
  - GASTROINTESTINAL DISORDER [None]
  - RASH [None]
  - CHEST PAIN [None]
  - COUGH [None]
  - MAMMOGRAM ABNORMAL [None]
  - GASTROOESOPHAGEAL REFLUX DISEASE [None]
  - DRY MOUTH [None]
  - ELECTROCARDIOGRAM ABNORMAL [None]
  - FEMUR FRACTURE [None]
  - TYPE V HYPERLIPIDAEMIA [None]
